FAERS Safety Report 9442297 (Version 1)
Quarter: 2013Q3

REPORT INFORMATION
  Report Type: Spontaneous
  Country: US (occurrence: None)
  Receive Date: 20130805
  Receipt Date: 20130805
  Transmission Date: 20140515
  Serious: Yes (Hospitalization, Other)
  Sender: FDA-Public Use
  Company Number: None

PATIENT
  Age: 47 Year
  Sex: Female

DRUGS (13)
  1. HYDROCHLOROTHIAZIDE ( HYDROCHLOROTHIAZIDE) [Suspect]
     Indication: HYPERTENSION
     Dosage: 1 PILL AM DAILY ORAL PILL
     Route: 048
     Dates: start: 20110107, end: 20130107
  2. VALPROIC ACID [Concomitant]
  3. COLONZOPAM [Concomitant]
  4. SEROQUIL [Concomitant]
  5. LEVOTHYROXIN [Concomitant]
  6. CRESTOR [Concomitant]
  7. SEROQUIL [Concomitant]
  8. VICODIN [Concomitant]
  9. MIRTZOPINE [Concomitant]
  10. DEXILANT [Concomitant]
  11. VIT D [Concomitant]
  12. FISH OIL [Concomitant]
  13. MULTI-VITAMIN [Concomitant]

REACTIONS (2)
  - Congenital cystic kidney disease [None]
  - Pollakiuria [None]
